FAERS Safety Report 9836024 (Version 1)
Quarter: 2014Q1

REPORT INFORMATION
  Report Type: Spontaneous
  Country: US (occurrence: US)
  Receive Date: 20140122
  Receipt Date: 20140122
  Transmission Date: 20141002
  Serious: Yes (Death)
  Sender: FDA-Public Use
  Company Number: US-BRISTOL-MYERS SQUIBB COMPANY-20072203

PATIENT
  Sex: Male

DRUGS (2)
  1. BYETTA [Suspect]
     Dates: start: 20080210, end: 20081008
  2. JANUVIA [Suspect]
     Dates: start: 20081008, end: 20081119

REACTIONS (1)
  - Pancreatic carcinoma [None]
